FAERS Safety Report 12375691 (Version 1)
Quarter: 2016Q2

REPORT INFORMATION
  Report Type: Report from Study
  Country: US (occurrence: US)
  Receive Date: 20160517
  Receipt Date: 20160517
  Transmission Date: 20160815
  Serious: No
  Sender: FDA-Public Use
  Company Number: US-AMGEN-USASL2016061690

PATIENT
  Age: 55 Year
  Sex: Female

DRUGS (1)
  1. ENBREL [Suspect]
     Active Substance: ETANERCEPT
     Indication: PRODUCT USED FOR UNKNOWN INDICATION
     Dosage: UNK UNK, UNK
     Route: 065
     Dates: start: 20151225

REACTIONS (5)
  - Visual impairment [Unknown]
  - Dyspepsia [Unknown]
  - Haemoglobin decreased [Unknown]
  - Dysphagia [Unknown]
  - Dizziness [Unknown]

NARRATIVE: CASE EVENT DATE: 20151225
